FAERS Safety Report 21771983 (Version 1)
Quarter: 2022Q4

REPORT INFORMATION
  Report Type: Spontaneous
  Country: US (occurrence: US)
  Receive Date: 20221223
  Receipt Date: 20221223
  Transmission Date: 20230113
  Serious: Yes (Death, Other)
  Sender: FDA-Public Use
  Company Number: US-Shilpa Medicare Limited-SML-US-2022-01656

PATIENT
  Age: 31 Year
  Sex: Male

DRUGS (4)
  1. GEMCITABINE [Suspect]
     Active Substance: GEMCITABINE
     Indication: Scrotal cancer
     Route: 065
  2. CARBOPLATIN [Suspect]
     Active Substance: CARBOPLATIN
     Indication: Scrotal cancer
     Route: 065
  3. LEUPROLIDE [Suspect]
     Active Substance: LEUPROLIDE
     Indication: Scrotal cancer
     Route: 065
  4. HERCEPTIN [Suspect]
     Active Substance: TRASTUZUMAB
     Indication: Scrotal cancer
     Route: 065

REACTIONS (8)
  - Disease progression [Fatal]
  - Drug ineffective [Unknown]
  - Lymphoedema [Unknown]
  - Scrotal swelling [Unknown]
  - Weight decreased [Unknown]
  - Wound infection [Unknown]
  - Pancytopenia [Unknown]
  - Pleural effusion [Unknown]
